FAERS Safety Report 24694272 (Version 1)
Quarter: 2024Q4

REPORT INFORMATION
  Report Type: Report from Study
  Country: US (occurrence: US)
  Receive Date: 20241204
  Receipt Date: 20241204
  Transmission Date: 20250114
  Serious: Yes (Hospitalization)
  Sender: ABBVIE
  Company Number: US-ABBVIE-6029557

PATIENT
  Age: 57 Year
  Sex: Female

DRUGS (3)
  1. SKYRIZI [Suspect]
     Active Substance: RISANKIZUMAB-RZAA
     Indication: Crohn^s disease
     Dosage: DOSE: 600 MG/ 10 ML, WEEK 0
     Route: 042
     Dates: start: 202408, end: 202408
  2. SKYRIZI [Suspect]
     Active Substance: RISANKIZUMAB-RZAA
     Indication: Crohn^s disease
     Dosage: DOSE: 600 MG/ 10 ML, WEEK 4
     Route: 042
     Dates: start: 202409, end: 202409
  3. SKYRIZI [Suspect]
     Active Substance: RISANKIZUMAB-RZAA
     Indication: Crohn^s disease
     Dosage: DOSE: 600 MG/ 10 ML, WEEK 8
     Route: 042
     Dates: start: 20241105, end: 20241105

REACTIONS (4)
  - Blood creatinine increased [Not Recovered/Not Resolved]
  - Nephrolithiasis [Unknown]
  - Arthralgia [Recovered/Resolved]
  - Pain in extremity [Recovered/Resolved]

NARRATIVE: CASE EVENT DATE: 20240101
